FAERS Safety Report 14620128 (Version 1)
Quarter: 2018Q1

REPORT INFORMATION
  Report Type: Spontaneous
  Country: CA (occurrence: CA)
  Receive Date: 20180309
  Receipt Date: 20180309
  Transmission Date: 20180509
  Serious: Yes (Other)
  Sender: FDA-Public Use
  Company Number: CA-BAUSCH-BL-2018-005612

PATIENT
  Age: 58 Year
  Sex: Female
  Weight: 63.56 kg

DRUGS (1)
  1. ZYCLARA [Suspect]
     Active Substance: IMIQUIMOD
     Indication: SKIN LESION
     Route: 061
     Dates: start: 201802

REACTIONS (7)
  - Drug ineffective for unapproved indication [Unknown]
  - Erythema [Not Recovered/Not Resolved]
  - Off label use [Unknown]
  - Scab [Unknown]
  - Neoplasm malignant [Not Recovered/Not Resolved]
  - Prescription drug used without a prescription [Unknown]
  - Adverse reaction [Unknown]
